FAERS Safety Report 10152394 (Version 1)
Quarter: 2014Q2

REPORT INFORMATION
  Report Type: Report from Study
  Country: CA (occurrence: CA)
  Receive Date: 20140505
  Receipt Date: 20140505
  Transmission Date: 20141212
  Serious: Yes (Hospitalization)
  Sender: FDA-Public Use
  Company Number: CA-JNJFOC-20140408283

PATIENT
  Age: 17 Year
  Sex: Female
  Weight: 50.35 kg

DRUGS (4)
  1. REMICADE [Suspect]
     Indication: COLITIS ULCERATIVE
     Route: 042
     Dates: start: 20140412
  2. REMICADE [Suspect]
     Indication: COLITIS ULCERATIVE
     Route: 042
     Dates: start: 20140418, end: 20140418
  3. PREDNISONE [Concomitant]
     Route: 048
  4. IMURAN [Concomitant]
     Route: 048

REACTIONS (2)
  - Colectomy [Unknown]
  - Drug ineffective [Unknown]
